FAERS Safety Report 9445910 (Version 1)
Quarter: 2013Q3

REPORT INFORMATION
  Report Type: Report from Study
  Country: BR (occurrence: BR)
  Receive Date: 20130807
  Receipt Date: 20130807
  Transmission Date: 20140515
  Serious: Yes (Other)
  Sender: FDA-Public Use
  Company Number: PHHY2013BR082947

PATIENT
  Sex: Female
  Weight: 86 kg

DRUGS (8)
  1. DIOVAN [Suspect]
     Indication: HYPERTENSION
     Dosage: 160 MG, QD
     Dates: end: 20130720
  2. DIOVAN [Suspect]
     Dosage: 320 MG, UNK
  3. SIMVASTATIN SANDOZ [Concomitant]
     Indication: BLOOD CHOLESTEROL
     Dosage: 20 MG, UNK
  4. PURAN T4 [Concomitant]
     Indication: THYROID DISORDER
     Dosage: 75 UG, UNK
  5. SELOZOK [Concomitant]
     Indication: CARDIAC DISORDER
     Dosage: 50 MG, UNK
  6. INSULIN (NPH AND REGULAR) [Concomitant]
     Dosage: 70 MG, DAILY (40MG IN THE MORNING AND 30MG AT NIGHT)
  7. INSULIN REGULAR//INSULIN PORCINE [Concomitant]
     Dosage: 5 MG, QD (AT LUNCH)
  8. NPH INSULIN [Concomitant]
     Dosage: 20 MG, QD(AT LUNCH)

REACTIONS (3)
  - Lower limb fracture [Not Recovered/Not Resolved]
  - Cataract [Not Recovered/Not Resolved]
  - Blood pressure increased [Not Recovered/Not Resolved]
